FAERS Safety Report 12811118 (Version 1)
Quarter: 2016Q4

REPORT INFORMATION
  Report Type: Spontaneous
  Country: US (occurrence: US)
  Receive Date: 20161005
  Receipt Date: 20161005
  Transmission Date: 20170207
  Serious: Yes (Hospitalization)
  Sender: FDA-Public Use
  Company Number: None

PATIENT
  Age: 4 Year
  Sex: Female
  Weight: 15.75 kg

DRUGS (3)
  1. COLD N COUGH 4 KIDS [Suspect]
     Active Substance: HOMEOPATHICS
     Indication: NASOPHARYNGITIS
     Dosage: ?          QUANTITY:1 TEASPOON(S);?
     Route: 048
     Dates: start: 20160916, end: 20160916
  2. TYLENOL [Concomitant]
     Active Substance: ACETAMINOPHEN
  3. FLINSTONES IMMUNITY SUPPORT VITAMINS [Concomitant]
     Active Substance: VITAMINS

REACTIONS (8)
  - Fall [None]
  - Loss of consciousness [None]
  - Influenza [None]
  - Seizure [None]
  - Respiratory arrest [None]
  - Condition aggravated [None]
  - Pain [None]
  - Hypersensitivity [None]

NARRATIVE: CASE EVENT DATE: 20160916
